FAERS Safety Report 4722816-4 (Version None)
Quarter: 2005Q3

REPORT INFORMATION
  Report Type: 
  Country: None (occurrence: None)
  Receive Date: 20050722
  Receipt Date: 20050711
  Transmission Date: 20060218
  Serious: Yes (Hospitalization)
  Sender: FDA-Public Use
  Company Number: US-JNJFOC-20050101237

PATIENT
  Sex: Female
  Weight: 56.25 kg

DRUGS (14)
  1. DURAGESIC-100 [Suspect]
     Route: 062
  2. PHENOBARBITAL [Concomitant]
     Route: 048
  3. XANAX [Concomitant]
     Indication: TREMOR
     Dosage: 0.5 MG, 2-3 TIMES DAILY
     Route: 048
  4. KEPPRA [Concomitant]
  5. AMBIEN [Concomitant]
     Indication: INSOMNIA
  6. PARAFON FORTE [Concomitant]
  7. PARAFON FORTE [Concomitant]
  8. DARVOCET [Concomitant]
  9. DARVOCET [Concomitant]
     Indication: PAIN
  10. MAXALT [Concomitant]
     Indication: MIGRAINE
  11. NEURONTIN [Concomitant]
     Indication: MIGRAINE
  12. NEXIUM [Concomitant]
  13. ZOFRAN [Concomitant]
     Indication: NAUSEA
  14. ALLEGRA [Concomitant]

REACTIONS (4)
  - CERVIX CERCLAGE PROCEDURE [None]
  - DRUG EXPOSURE DURING PREGNANCY [None]
  - MENSTRUATION IRREGULAR [None]
  - PREMATURE LABOUR [None]
